FAERS Safety Report 6345331-3 (Version None)
Quarter: 2009Q3

REPORT INFORMATION
  Report Type: 
  Country: None (occurrence: None)
  Receive Date: 20090821
  Receipt Date: 20090630
  Transmission Date: 20100115
  Serious: No
  Sender: FDA-Public Use
  Company Number: 8048416

PATIENT
  Age: 60 Year
  Sex: Female
  Weight: 94.34 kg

DRUGS (21)
  1. CIMZIA [Suspect]
     Indication: CROHN'S DISEASE
     Dosage: 400 MG SC
     Route: 058
     Dates: start: 20090612
  2. DURAGESIC-100 [Concomitant]
  3. ACTIQ [Concomitant]
  4. ATENOLOL [Concomitant]
  5. LISINOPRIL [Concomitant]
  6. PROVIGIL [Concomitant]
  7. SERTRALINE HCL [Concomitant]
  8. SINGULAIR [Concomitant]
  9. PROAIR HFA [Concomitant]
  10. FLONASE [Concomitant]
  11. VITAMIN B-12 [Concomitant]
  12. ESTROGEN [Concomitant]
  13. IMITREX [Concomitant]
  14. MAXALT [Concomitant]
  15. ZEGERID [Concomitant]
  16. LOMOTIL [Concomitant]
  17. BACLOFEN [Concomitant]
  18. AMBIEN [Concomitant]
  19. VALIUM [Concomitant]
  20. LIDODERM [Concomitant]
  21. METROCLOPRAMINE [Concomitant]

REACTIONS (6)
  - ASTHENIA [None]
  - COUGH [None]
  - CYSTITIS [None]
  - PNEUMONIA [None]
  - PYREXIA [None]
  - WHEEZING [None]
